FAERS Safety Report 9382561 (Version 4)
Quarter: 2014Q4

REPORT INFORMATION
  Report Type: Spontaneous
  Country: US (occurrence: US)
  Receive Date: 20130703
  Receipt Date: 20141209
  Transmission Date: 20150529
  Serious: Yes (Death, Hospitalization, Other)
  Sender: FDA-Public Use
  Company Number: US-GLAXOSMITHKLINE-A1029328A

PATIENT
  Age: 66 Year
  Sex: Female

DRUGS (1)
  1. AVANDIA [Suspect]
     Active Substance: ROSIGLITAZONE MALEATE
     Indication: DIABETES MELLITUS
     Route: 048
     Dates: start: 200006, end: 201212

REACTIONS (4)
  - Circulatory collapse [Fatal]
  - Cardiac failure congestive [Unknown]
  - Cardiac arrest [Fatal]
  - Myocardial infarction [Fatal]

NARRATIVE: CASE EVENT DATE: 200102
